FAERS Safety Report 17848797 (Version 2)
Quarter: 2023Q1

REPORT INFORMATION
  Report Type: Spontaneous
  Country: RO (occurrence: RO)
  Receive Date: 20200602
  Receipt Date: 20230201
  Transmission Date: 20230418
  Serious: Yes (Other)
  Sender: FDA-Public Use
  Company Number: RO-NOVARTISPH-NVSC2020RO149941

PATIENT
  Age: 42 Year
  Sex: Female

DRUGS (7)
  1. ZOLEDRONIC ACID [Suspect]
     Active Substance: ZOLEDRONIC ACID
     Indication: Product used for unknown indication
     Dosage: UNK
     Route: 065
  2. TAMOXIFEN [Suspect]
     Active Substance: TAMOXIFEN
     Indication: Product used for unknown indication
     Dosage: UNK
     Route: 065
  3. FULVESTRANT [Suspect]
     Active Substance: FULVESTRANT
     Indication: Product used for unknown indication
     Dosage: 500 MG, CYCLIC (EVERY 14 DAYS IN 1ST MONTH, SUBSEQUENTLY EVERY 28 DAYS)
     Route: 030
     Dates: start: 201912
  4. DENOSUMAB [Suspect]
     Active Substance: DENOSUMAB
     Indication: Product used for unknown indication
     Dosage: UNK
     Route: 065
     Dates: start: 201804
  5. CAPECITABINE [Suspect]
     Active Substance: CAPECITABINE
     Indication: Product used for unknown indication
     Dosage: UNK
     Route: 065
     Dates: start: 201804
  6. PALBOCICLIB [Suspect]
     Active Substance: PALBOCICLIB
     Indication: Product used for unknown indication
     Dosage: 125 MG, CYCLIC (CYCLICAL), (FOR 21 DAYS WITH 7 DAYS OFF TREATMENT))
     Route: 065
     Dates: start: 201912
  7. ZOLADEX [Suspect]
     Active Substance: GOSERELIN ACETATE
     Indication: Product used for unknown indication
     Dosage: UNK
     Route: 065

REACTIONS (16)
  - Hepatic cytolysis [Recovered/Resolved]
  - Bladder cancer [Unknown]
  - Hepatic cytolysis [Recovered/Resolved]
  - Hepatic lesion [Unknown]
  - Adnexa uteri mass [Unknown]
  - Bladder cancer [Unknown]
  - Lymphadenopathy [Unknown]
  - Abdominal lymphadenopathy [Unknown]
  - Jaundice [Unknown]
  - Neutropenia [Unknown]
  - Leukopenia [Unknown]
  - Leukopenia [Unknown]
  - Cholestasis [Unknown]
  - Cholestasis [Unknown]
  - Neutropenia [Unknown]
  - Therapy non-responder [Unknown]

NARRATIVE: CASE EVENT DATE: 20191201
